FAERS Safety Report 7367729-7 (Version None)
Quarter: 2011Q1

REPORT INFORMATION
  Report Type: 
  Country: None (occurrence: None)
  Receive Date: 20110322
  Receipt Date: 20110315
  Transmission Date: 20110831
  Serious: Yes (Other)
  Sender: FDA-Public Use
  Company Number: CH-ABBOTT-11P-151-0705946-00

PATIENT
  Age: 52 Year
  Sex: Female

DRUGS (1)
  1. HUMIRA [Suspect]
     Indication: RHEUMATOID ARTHRITIS
     Route: 058
     Dates: start: 20030907, end: 20110212

REACTIONS (6)
  - ISCHAEMIA [None]
  - HEADACHE [None]
  - PARAESTHESIA [None]
  - AMAUROSIS FUGAX [None]
  - INCONTINENCE [None]
  - INFLAMMATION [None]
